FAERS Safety Report 8232740-0 (Version None)
Quarter: 2012Q1

REPORT INFORMATION
  Report Type: 
  Country: None (occurrence: None)
  Receive Date: 20120323
  Receipt Date: 20120314
  Transmission Date: 20120608
  Serious: Yes (Death, Hospitalization, Other)
  Sender: FDA-Public Use
  Company Number: JP-ABBOTT-12P-087-0904802-00

PATIENT
  Sex: Female
  Weight: 55 kg

DRUGS (40)
  1. METHOTREXATE [Concomitant]
     Dosage: ON MONDAY, AFTER BREAKFAST AND SUPPER
     Route: 048
     Dates: start: 20090819
  2. HYDROCORTISONE/CROTAMITON [Concomitant]
     Indication: PRODUCT USED FOR UNKNOWN INDICATION
     Dosage: WHEN THE PATIENT HAD ITCHING
     Route: 061
     Dates: start: 20090819
  3. TROPICAMIDE/PHENYLEPHRINE HYDROCHLORIDE [Concomitant]
     Indication: PRODUCT USED FOR UNKNOWN INDICATION
     Dates: start: 20090910
  4. GOSHAJINKIGAN [Concomitant]
     Indication: PRODUCT USED FOR UNKNOWN INDICATION
     Dosage: 3 PACK IN 3 DIVIDED DOSES BEFORE MEALS
     Dates: start: 20120216
  5. PREDNISOLONE [Concomitant]
     Indication: PRODUCT USED FOR UNKNOWN INDICATION
     Dosage: DAILY DOSE: 8MG
     Route: 048
  6. ROXATIDINE ACETATE HCL [Concomitant]
     Indication: PRODUCT USED FOR UNKNOWN INDICATION
     Dosage: BEFORE BREAKFAST AND SUPPER
     Route: 048
     Dates: start: 20090819
  7. DICLOFENAC SODIUM [Concomitant]
     Route: 054
     Dates: start: 20090910
  8. LEVOFLOXACIN HYDRATE [Concomitant]
     Indication: PRODUCT USED FOR UNKNOWN INDICATION
     Dosage: 2T QBREAKFAST, 2T QDINNER
     Dates: start: 20090909
  9. PREDNISOLONE [Concomitant]
     Dosage: ON ODD DAYS, AFTER BREAKFAST
     Route: 048
     Dates: start: 20090819
  10. KETOPROFEN [Concomitant]
     Indication: PRODUCT USED FOR UNKNOWN INDICATION
     Dosage: ON ANKLE AND LOWER BACK
     Route: 062
     Dates: start: 20090819
  11. LANSOPRAZOLE [Concomitant]
     Indication: PRODUCT USED FOR UNKNOWN INDICATION
     Dosage: AFTER BREAKFAST
     Route: 048
     Dates: start: 20090819
  12. DICLOFENAC SODIUM [Concomitant]
     Indication: PYREXIA
     Route: 047
     Dates: start: 20090910
  13. BETAMETHASONE SODIUM HYDRATE [Concomitant]
     Indication: PRODUCT USED FOR UNKNOWN INDICATION
     Route: 047
     Dates: start: 20090910
  14. CARVEDILOL [Concomitant]
     Indication: PRODUCT USED FOR UNKNOWN INDICATION
     Dosage: 1 T AFTER BREAKFAST
     Dates: start: 20111031
  15. IODINE [Concomitant]
     Indication: PRODUCT USED FOR UNKNOWN INDICATION
     Dosage: 0.9% 40 GRAM/TUBE 20 TUBES
     Dates: start: 20111031
  16. LEVOFLOXACIN HYDRATE [Concomitant]
     Route: 047
     Dates: start: 20090910
  17. EAR AND NASAL SOLUTION [Concomitant]
     Indication: PRODUCT USED FOR UNKNOWN INDICATION
     Dates: start: 20090910
  18. LOSARTAN POTASSIUM [Concomitant]
     Indication: PRODUCT USED FOR UNKNOWN INDICATION
     Dosage: 1T AFTER DINNER
     Dates: start: 20120216
  19. OXYCODONE HCL [Concomitant]
     Dates: start: 20111031
  20. PREDNISOLONE [Concomitant]
     Dosage: AFTER SUPPER
     Route: 048
     Dates: start: 20090819
  21. BROTIZOLAM [Concomitant]
     Indication: INSOMNIA
     Dosage: 5 TIMES DOSE
     Dates: start: 20090907
  22. WHITE PETROLATUM [Concomitant]
     Indication: PRODUCT USED FOR UNKNOWN INDICATION
     Dates: start: 20111031
  23. OXYCODONE HCL [Concomitant]
     Indication: PAIN
     Dates: start: 20111031
  24. FOLIC ACID [Concomitant]
     Indication: PRODUCT USED FOR UNKNOWN INDICATION
     Dosage: ON THURSDAY, AFTER BREAKFAST
     Route: 048
     Dates: start: 20090819
  25. METOCLOPRAMIDE [Concomitant]
     Indication: PRODUCT USED FOR UNKNOWN INDICATION
     Dosage: 3T IN 3 DIVIDED DOSES AFTER MEALS
     Dates: start: 20120216
  26. METOCLOPRAMIDE [Concomitant]
     Dates: start: 20111031
  27. HUMIRA [Suspect]
     Indication: RHEUMATOID ARTHRITIS
     Route: 058
     Dates: start: 20090121, end: 20090914
  28. PREDNISOLONE [Concomitant]
     Dosage: ON EVEN DAYS AFTER BREAKFAST
     Route: 048
     Dates: start: 20090819
  29. DICLOFENAC SODIUM [Concomitant]
     Indication: PAIN
     Dosage: WHEN PATIENT HAD PAIN (FIVE TIMES DOSE)
     Route: 054
     Dates: start: 20090819
  30. POVIDONE-IODINE GARGLE 7% [Concomitant]
     Indication: PRODUCT USED FOR UNKNOWN INDICATION
     Dosage: 30 ML/BOTTLE 2 BOTTLES
     Dates: start: 20111031
  31. METHOTREXATE [Concomitant]
     Indication: PRODUCT USED FOR UNKNOWN INDICATION
     Route: 048
  32. METHOTREXATE [Concomitant]
     Dosage: TUESDAY, AFTER BREAKFAST
     Route: 048
  33. KETOPROFEN [Concomitant]
     Dosage: 20 MG WHEN THE PATIENT HAD PAIN
     Dates: start: 20090819
  34. ALENDRONATE SODIUM [Concomitant]
     Indication: PRODUCT USED FOR UNKNOWN INDICATION
     Dosage: ON MONDAY, AT THE TIME OF AWAKENING
     Route: 048
     Dates: start: 20090819
  35. CELECOXIB [Concomitant]
     Indication: PRODUCT USED FOR UNKNOWN INDICATION
     Dosage: AFTER BREAKFAST AND SUPPER
     Route: 048
     Dates: start: 20090819
  36. SENNOSIDE [Concomitant]
     Indication: CONSTIPATION
     Dosage: 5 TIMES DOSE
     Dates: start: 20090907
  37. ATORVASTATIN CALCIUM [Concomitant]
     Indication: PRODUCT USED FOR UNKNOWN INDICATION
     Dosage: 1T AFTER DINNER
     Dates: start: 20120216
  38. AZASETRON HYDROCHLORIDE [Concomitant]
     Indication: NAUSEA
     Dates: start: 20120216
  39. MAGNESIUM OXIDE [Concomitant]
     Indication: PRODUCT USED FOR UNKNOWN INDICATION
     Dates: start: 20111031
  40. PREGABALIN [Concomitant]
     Indication: PRODUCT USED FOR UNKNOWN INDICATION
     Dosage: 2 CAP IN 2 DIVIDED DOSE AFTER BREAKFAST AND DINNER
     Dates: start: 20111031

REACTIONS (30)
  - BREAST CANCER METASTATIC [None]
  - SPINAL CORD COMPRESSION [None]
  - DIPLEGIA [None]
  - METASTASES TO SPINE [None]
  - BONE MARROW FAILURE [None]
  - SOMNOLENCE [None]
  - PULMONARY TUBERCULOSIS [None]
  - NAUSEA [None]
  - CATARACT [None]
  - HAEMATOTOXICITY [None]
  - ELECTROLYTE IMBALANCE [None]
  - GAIT DISTURBANCE [None]
  - RENAL DISORDER [None]
  - INTERSTITIAL LUNG DISEASE [None]
  - MONOCYTE COUNT ABNORMAL [None]
  - MUSCULAR WEAKNESS [None]
  - ANAEMIA [None]
  - SPINAL COMPRESSION FRACTURE [None]
  - METASTASES TO BONE [None]
  - PANCYTOPENIA [None]
  - URINARY TRACT INFECTION [None]
  - METASTASES TO LUNG [None]
  - PLATELET COUNT DECREASED [None]
  - PAIN [None]
  - CATARACT SUBCAPSULAR [None]
  - CONSTIPATION [None]
  - PYREXIA [None]
  - CARDIAC ARREST [None]
  - NEUTROPHIL COUNT DECREASED [None]
  - HYPOALBUMINAEMIA [None]
